FAERS Safety Report 16051171 (Version 1)
Quarter: 2019Q1

REPORT INFORMATION
  Report Type: Spontaneous
  Country: US (occurrence: US)
  Receive Date: 20190308
  Receipt Date: 20190308
  Transmission Date: 20190418
  Serious: No
  Sender: FDA-Public Use
  Company Number: US-PFIZER INC-2019099420

PATIENT
  Age: 71 Year
  Sex: Female

DRUGS (1)
  1. SOMAVERT [Suspect]
     Active Substance: PEGVISOMANT
     Indication: ACROMEGALY
     Dosage: 30 MG, UNK (9 TIMES A WEEK)
     Route: 058
     Dates: start: 20090101

REACTIONS (11)
  - Off label use [Unknown]
  - Peripheral swelling [Unknown]
  - Gingival swelling [Unknown]
  - Influenza [Unknown]
  - Nausea [Unknown]
  - Nasopharyngitis [Unknown]
  - Mouth swelling [Unknown]
  - Arthralgia [Unknown]
  - Hypertension [Unknown]
  - Hypoglycaemia [Unknown]
  - Diarrhoea [Unknown]
